FAERS Safety Report 12242757 (Version 2)
Quarter: 2017Q1

REPORT INFORMATION
  Report Type: Report from Study
  Country: JP (occurrence: JP)
  Receive Date: 20160406
  Receipt Date: 20170303
  Transmission Date: 20170428
  Serious: Yes (Other)
  Sender: FDA-Public Use
  Company Number: JP-AMGEN-JPNNI2015118065

PATIENT
  Age: 71 Year
  Sex: Female

DRUGS (5)
  1. DENOSUMAB [Suspect]
     Active Substance: DENOSUMAB
     Indication: METASTASES TO BONE
     Dosage: 120 MG, UNK
     Route: 058
     Dates: start: 20130416
  2. ELSPRI CA [Concomitant]
     Dosage: 600 MG, QD
     Route: 048
     Dates: start: 20130416
  3. UFT [Concomitant]
     Active Substance: TEGAFUR\URACIL
     Dosage: 2.25 G, QD
     Route: 065
     Dates: start: 20130430, end: 20130514
  4. DENOSUMAB [Suspect]
     Active Substance: DENOSUMAB
     Dosage: 120 MG, UNK
     Route: 058
     Dates: start: 20130514
  5. MUCOSTA [Concomitant]
     Active Substance: REBAMIPIDE
     Dosage: 200 MG, QD
     Route: 048
     Dates: start: 20130507, end: 20130515

REACTIONS (2)
  - Metastases to liver [Not Recovered/Not Resolved]
  - Bone pain [Recovering/Resolving]

NARRATIVE: CASE EVENT DATE: 20130430
